FAERS Safety Report 16257593 (Version 1)
Quarter: 2019Q2

REPORT INFORMATION
  Report Type: Spontaneous
  Country: US (occurrence: US)
  Receive Date: 20190430
  Receipt Date: 20190430
  Transmission Date: 20190711
  Serious: Yes (Other)
  Sender: FDA-Public Use
  Company Number: PHHY2019US098535

PATIENT
  Sex: Male
  Weight: 3.5 kg

DRUGS (3)
  1. TISSUE PLASMINOGEN ACTIVATOR, RECOMBINATIVE [Suspect]
     Active Substance: ALTEPLASE
     Dosage: 0.1 MG/KG, QH AND CONTINUED FOR AN ADDITIONAL 9 H
     Route: 065
  2. TISSUE PLASMINOGEN ACTIVATOR, RECOMBINATIVE [Suspect]
     Active Substance: ALTEPLASE
     Indication: AORTIC THROMBOSIS
     Dosage: 0.1 MG/KG, QH AND CONTINUED FOR APPROXIMATELY 14 H
     Route: 065
  3. HEPARIN [Suspect]
     Active Substance: HEPARIN SODIUM
     Indication: THROMBOSIS
     Dosage: 10 UNITS/KG/H
     Route: 042

REACTIONS (5)
  - Haematuria [Unknown]
  - Endotracheal intubation complication [Unknown]
  - Haemorrhage [Unknown]
  - Contusion [Unknown]
  - Haematoma [Unknown]
